FAERS Safety Report 10760998 (Version 1)
Quarter: 2015Q1

REPORT INFORMATION
  Report Type: Report from Study
  Country: US (occurrence: US)
  Receive Date: 20150204
  Receipt Date: 20150204
  Transmission Date: 20150721
  Serious: Yes (Hospitalization)
  Sender: FDA-Public Use
  Company Number: US-SA-2015SA011353

PATIENT
  Age: 65 Year
  Sex: Female

DRUGS (2)
  1. SOLOSTAR [Concomitant]
     Active Substance: DEVICE
     Indication: TYPE 2 DIABETES MELLITUS
     Dates: start: 2005
  2. LANTUS SOLOSTAR [Suspect]
     Active Substance: INSULIN GLARGINE
     Indication: TYPE 2 DIABETES MELLITUS
     Dosage: DOSE:SOMETIMES 65 OR 70 UNITS DOSE:60 UNIT(S)
     Route: 065
     Dates: start: 2005

REACTIONS (5)
  - Thirst [Recovered/Resolved]
  - Paraesthesia [Recovered/Resolved]
  - Hospitalisation [Unknown]
  - Pain in extremity [Recovered/Resolved]
  - Drug dose omission [Unknown]
